FAERS Safety Report 5338732-3 (Version None)
Quarter: 2007Q2

REPORT INFORMATION
  Report Type: 
  Country: None (occurrence: None)
  Receive Date: 20070530
  Receipt Date: 20070524
  Transmission Date: 20071010
  Serious: Yes (Other)
  Sender: FDA-Public Use
  Company Number: D0053396A

PATIENT
  Sex: Female

DRUGS (1)
  1. ELONTRIL [Suspect]
     Route: 065
     Dates: start: 20070501

REACTIONS (3)
  - ANTITHROMBIN III INCREASED [None]
  - COAGULOPATHY [None]
  - CONTUSION [None]
